FAERS Safety Report 21037217 (Version 1)
Quarter: 2022Q3

REPORT INFORMATION
  Report Type: Spontaneous
  Country: US (occurrence: US)
  Receive Date: 20220703
  Receipt Date: 20220703
  Transmission Date: 20221027
  Serious: No
  Sender: FDA-Public Use
  Company Number: US-GE HEALTHCARE-2022CSU002673

PATIENT

DRUGS (2)
  1. INDIUM IN-111 OXYQUINOLINE [Suspect]
     Active Substance: INDIUM IN-111 OXYQUINOLINE
     Indication: Scan
     Dosage: 18.019 MBQ, SINGLE
     Route: 065
     Dates: start: 20220413, end: 20220413
  2. INDIUM IN-111 OXYQUINOLINE [Suspect]
     Active Substance: INDIUM IN-111 OXYQUINOLINE
     Indication: Infection

REACTIONS (1)
  - Arthralgia [Unknown]
